FAERS Safety Report 16683427 (Version 2)
Quarter: 2019Q3

REPORT INFORMATION
  Report Type: Report from Study
  Country: US (occurrence: US)
  Receive Date: 20190808
  Receipt Date: 20190814
  Transmission Date: 20191004
  Serious: Yes (Hospitalization, Other)
  Sender: FDA-Public Use
  Company Number: US-BAUSCH-BL-2019-022406

PATIENT
  Age: 68 Year
  Sex: Male

DRUGS (15)
  1. FOLVITE [Concomitant]
     Active Substance: FOLIC ACID
     Indication: PRODUCT USED FOR UNKNOWN INDICATION
     Dosage: DISPENSED 90 TABLETS
     Route: 048
  2. CHRONULAC [Concomitant]
     Active Substance: LACTULOSE
     Indication: PRODUCT USED FOR UNKNOWN INDICATION
     Dosage: HIGH DOSE
  3. TOPROL XL [Concomitant]
     Active Substance: METOPROLOL SUCCINATE
     Indication: HYPERTENSION
     Dosage: EXTENDED RELEASE
  4. CHRONULAC [Concomitant]
     Active Substance: LACTULOSE
     Dosage: STRENGTH: 20 GRAM/30 ML, DISPENSED: 13500 ML DURING SECOND DISCHARGE, WHILE AWAKE
     Route: 048
     Dates: start: 2019
  5. VITAMIN B1 [Concomitant]
     Active Substance: THIAMINE HYDROCHLORIDE
     Indication: PRODUCT USED FOR UNKNOWN INDICATION
     Route: 048
  6. XIFAXAN [Suspect]
     Active Substance: RIFAXIMIN
     Indication: HEPATIC ENCEPHALOPATHY
     Route: 048
     Dates: start: 20180331, end: 201907
  7. CHRONULAC [Concomitant]
     Active Substance: LACTULOSE
     Dosage: STRENGTH: 20 GRAM/30 ML, DISPENSED: 5400 ML DURING FIRST DISCHARGE
     Route: 048
     Dates: start: 2019
  8. DEMADEX [Concomitant]
     Active Substance: TORSEMIDE
     Indication: PRODUCT USED FOR UNKNOWN INDICATION
     Dosage: DISPENSED 30 TABLETS
     Route: 048
     Dates: start: 2019
  9. ATORVASTATIN [Concomitant]
     Active Substance: ATORVASTATIN
     Indication: HYPERLIPIDAEMIA
  10. PROTONIX [Concomitant]
     Active Substance: PANTOPRAZOLE SODIUM
     Indication: GASTROOESOPHAGEAL REFLUX DISEASE
     Dosage: DISPENSED 30 TABLETS
     Route: 048
  11. ALDACTONE [Concomitant]
     Active Substance: SPIRONOLACTONE
     Indication: PRODUCT USED FOR UNKNOWN INDICATION
     Dosage: DISPENSED 30 TABLETS
     Route: 048
     Dates: start: 20190605
  12. VITAMIN B12 [Concomitant]
     Active Substance: CYANOCOBALAMIN
     Indication: PRODUCT USED FOR UNKNOWN INDICATION
  13. VITAMIN D3 [Concomitant]
     Active Substance: CHOLECALCIFEROL
     Indication: PRODUCT USED FOR UNKNOWN INDICATION
     Route: 048
  14. XIFAXAN [Suspect]
     Active Substance: RIFAXIMIN
     Dosage: PATIENT WAS GIVEN SAMPLES ON 17/JUL/2019 AND 30/JUL/2019
     Route: 048
     Dates: start: 201907
  15. ALIGN [Concomitant]
     Active Substance: BIFIDOBACTERIUM LONGUM SUBSP. INFANTIS
     Indication: PRODUCT USED FOR UNKNOWN INDICATION

REACTIONS (4)
  - Jaundice [Unknown]
  - Therapy cessation [Unknown]
  - Hepatic cirrhosis [Unknown]
  - Atrial flutter [Unknown]

NARRATIVE: CASE EVENT DATE: 20190603
